FAERS Safety Report 7707809-7 (Version None)
Quarter: 2011Q3

REPORT INFORMATION
  Report Type: 
  Country: None (occurrence: None)
  Receive Date: 20110824
  Receipt Date: 20110819
  Transmission Date: 20111222
  Serious: Yes (Death, Hospitalization, Other)
  Sender: FDA-Public Use
  Company Number: PHHY2011PK74660

PATIENT
  Age: 75 Year
  Sex: Female
  Weight: 80 kg

DRUGS (3)
  1. SPIROMIDE [Concomitant]
     Indication: CARDIAC DISORDER
     Route: 048
  2. LOPLAT PLUS [Concomitant]
     Indication: CARDIAC DISORDER
     Route: 048
  3. EXELON [Suspect]
     Indication: DEMENTIA ALZHEIMER'S TYPE
     Dosage: 4.6 MG, (PACTH 5)
     Route: 062
     Dates: start: 20110622

REACTIONS (5)
  - PYREXIA [None]
  - CHILLS [None]
  - DYSPHAGIA [None]
  - ALTERED STATE OF CONSCIOUSNESS [None]
  - PNEUMONIA ASPIRATION [None]
